FAERS Safety Report 24867970 (Version 2)
Quarter: 2025Q1

REPORT INFORMATION
  Report Type: Report from Study
  Country: CN (occurrence: CN)
  Receive Date: 20250121
  Receipt Date: 20250220
  Transmission Date: 20250409
  Serious: Yes (Other)
  Sender: ROCHE
  Company Number: CN-ROCHE-10000180583

PATIENT
  Age: 67 Year
  Sex: Female
  Weight: 48 kg

DRUGS (16)
  1. POLATUZUMAB VEDOTIN [Suspect]
     Active Substance: POLATUZUMAB VEDOTIN
     Indication: Diffuse large B-cell lymphoma
     Route: 040
     Dates: start: 20241204, end: 20241204
  2. POLATUZUMAB VEDOTIN [Suspect]
     Active Substance: POLATUZUMAB VEDOTIN
     Route: 040
     Dates: start: 20241204, end: 20241204
  3. DOXORUBICIN HYDROCHLORIDE [Suspect]
     Active Substance: DOXORUBICIN HYDROCHLORIDE
     Indication: Diffuse large B-cell lymphoma
     Route: 040
     Dates: start: 20241205, end: 20241205
  4. DOXORUBICIN HYDROCHLORIDE [Suspect]
     Active Substance: DOXORUBICIN HYDROCHLORIDE
     Route: 040
     Dates: start: 20241205, end: 20241205
  5. CYCLOPHOSPHAMIDE [Suspect]
     Active Substance: CYCLOPHOSPHAMIDE
     Indication: Diffuse large B-cell lymphoma
     Route: 040
     Dates: start: 20241205, end: 20241205
  6. CYCLOPHOSPHAMIDE [Suspect]
     Active Substance: CYCLOPHOSPHAMIDE
     Route: 040
     Dates: start: 20241205, end: 20241205
  7. DEXAMETHASONE [Suspect]
     Active Substance: DEXAMETHASONE
     Indication: Diffuse large B-cell lymphoma
     Route: 040
     Dates: start: 20241205, end: 20241209
  8. DEXAMETHASONE [Suspect]
     Active Substance: DEXAMETHASONE
     Route: 040
     Dates: start: 20241205, end: 20241209
  9. ZUBERITAMAB [Suspect]
     Active Substance: ZUBERITAMAB
     Indication: Diffuse large B-cell lymphoma
     Route: 040
     Dates: start: 20241204, end: 20241204
  10. ZUBERITAMAB [Suspect]
     Active Substance: ZUBERITAMAB
     Route: 040
     Dates: start: 20241204, end: 20241204
  11. MAGNESIUM ISOGLYCYRRHIZINATE [Concomitant]
     Active Substance: MAGNESIUM ISOGLYCYRRHIZINATE
     Indication: Prophylaxis
     Route: 040
     Dates: start: 20241204, end: 20241209
  12. CALCIUM CARBONATE\CHOLECALCIFEROL [Concomitant]
     Active Substance: CALCIUM CARBONATE\CHOLECALCIFEROL
     Indication: Prophylaxis
     Route: 048
     Dates: start: 20241204, end: 20241209
  13. Roxatidine hydrochloride acetate [Concomitant]
     Indication: Prophylaxis
     Route: 040
     Dates: start: 20241204, end: 20241209
  14. Calcium dibutyryl cyclic adenosine phosphate [Concomitant]
     Indication: Prophylaxis
     Route: 040
     Dates: start: 20241204, end: 20241209
  15. LOXOPROFEN SODIUM [Concomitant]
     Active Substance: LOXOPROFEN SODIUM
     Indication: Prophylaxis
     Route: 048
     Dates: start: 20250107, end: 20250107
  16. LORATADINE [Concomitant]
     Active Substance: LORATADINE
     Indication: Prophylaxis
     Route: 048
     Dates: start: 20250107, end: 20250107

REACTIONS (3)
  - Septic shock [Recovered/Resolved]
  - Hypophosphataemia [Recovered/Resolved]
  - Hypocalcaemia [Recovered/Resolved]

NARRATIVE: CASE EVENT DATE: 20241216
